FAERS Safety Report 21249777 (Version 3)
Quarter: 2022Q4

REPORT INFORMATION
  Report Type: Spontaneous
  Country: US (occurrence: US)
  Receive Date: 20220824
  Receipt Date: 20221202
  Transmission Date: 20230113
  Serious: No
  Sender: FDA-Public Use
  Company Number: US-TEVA-2022-US-2066728

PATIENT
  Age: 67 Year
  Sex: Female
  Weight: 102.51 kg

DRUGS (2)
  1. CINQAIR [Suspect]
     Active Substance: RESLIZUMAB
     Indication: Asthma
     Dosage: 10 MG/ML
     Route: 042
     Dates: start: 20220516, end: 20221008
  2. CINQAIR [Suspect]
     Active Substance: RESLIZUMAB
     Dosage: 100 MG / 10 ML
     Route: 042
     Dates: start: 2022

REACTIONS (2)
  - Dyspnoea [Unknown]
  - Drug ineffective [Unknown]

NARRATIVE: CASE EVENT DATE: 20220101
